FAERS Safety Report 15792128 (Version 6)
Quarter: 2019Q4

REPORT INFORMATION
  Report Type: Report from Study
  Country: US (occurrence: US)
  Receive Date: 20190106
  Receipt Date: 20191015
  Transmission Date: 20200122
  Serious: Yes (Other)
  Sender: FDA-Public Use
  Company Number: PHEH2018US055504

PATIENT
  Age: 61 Year
  Sex: Female

DRUGS (1)
  1. GILENYA [Suspect]
     Active Substance: FINGOLIMOD HYDROCHLORIDE
     Indication: MULTIPLE SCLEROSIS
     Dosage: 0.5 MG, QD
     Route: 048
     Dates: start: 20170816

REACTIONS (12)
  - Blood pressure increased [Unknown]
  - Sinusitis [Recovered/Resolved]
  - Fall [Not Recovered/Not Resolved]
  - Arterial disorder [Unknown]
  - Clavicle fracture [Unknown]
  - Neck injury [Not Recovered/Not Resolved]
  - Device issue [Unknown]
  - Dysphagia [Unknown]
  - Nausea [Not Recovered/Not Resolved]
  - Syncope [Unknown]
  - Hypoaesthesia [Unknown]
  - Oxygen saturation decreased [Unknown]

NARRATIVE: CASE EVENT DATE: 20190809
